FAERS Safety Report 8134688-9 (Version None)
Quarter: 2012Q1

REPORT INFORMATION
  Report Type: 
  Country: None (occurrence: None)
  Receive Date: 20120214
  Receipt Date: 20120209
  Transmission Date: 20120608
  Serious: No
  Sender: FDA-Public Use
  Company Number: US-PFIZER INC-2012036246

PATIENT
  Sex: Female
  Weight: 50.794 kg

DRUGS (2)
  1. PROTONIX [Suspect]
     Indication: ULCER
     Dosage: 40 MG, 1X/DAY
     Route: 048
     Dates: start: 20040101
  2. NORVASC [Concomitant]
     Dosage: UNK

REACTIONS (3)
  - MALAISE [None]
  - DRUG INEFFECTIVE [None]
  - HYPERCHLORHYDRIA [None]
